FAERS Safety Report 5160967-3 (Version None)
Quarter: 2006Q4

REPORT INFORMATION
  Report Type: 
  Country: None (occurrence: None)
  Receive Date: 20061130
  Receipt Date: 20060428
  Transmission Date: 20070319
  Serious: No
  Sender: FDA-Public Use
  Company Number: US-BRISTOL-MYERS SQUIBB COMPANY-13360078

PATIENT
  Age: 73 Year
  Sex: Female
  Weight: 49 kg

DRUGS (2)
  1. IRBESARTAN + HYDROCHLOROTHIAZIDE [Suspect]
     Indication: HYPERTENSION
     Dosage: DOSAGE FORM IS 150 MG/12.5 MG ONE TABLET DAILY.
     Route: 048
  2. IBUPROFEN [Concomitant]

REACTIONS (3)
  - NECK PAIN [None]
  - PALPITATIONS [None]
  - TACHYCARDIA [None]
